FAERS Safety Report 16194435 (Version 1)
Quarter: 2019Q2

REPORT INFORMATION
  Report Type: Spontaneous
  Country: FR (occurrence: FR)
  Receive Date: 20190414
  Receipt Date: 20190414
  Transmission Date: 20190711
  Serious: Yes (Death)
  Sender: FDA-Public Use
  Company Number: FR-TEVA-2019-FR-1036304

PATIENT
  Age: 39 Year
  Sex: Male

DRUGS (7)
  1. CYAMEMAZINE BASE [Suspect]
     Active Substance: CYAMEMAZINE
     Route: 065
  2. SERTRALINE [Suspect]
     Active Substance: SERTRALINE HYDROCHLORIDE
     Route: 065
  3. DIAZEPAM. [Suspect]
     Active Substance: DIAZEPAM
     Route: 065
  4. IBUPROFENE [Suspect]
     Active Substance: IBUPROFEN
     Route: 065
  5. PARACETAMOL [Suspect]
     Active Substance: ACETAMINOPHEN
     Route: 065
  6. ZOPICLONE [Suspect]
     Active Substance: ZOPICLONE
     Route: 065
  7. TRAMADOL BASE [Suspect]
     Active Substance: TRAMADOL
     Route: 065

REACTIONS (1)
  - Death [Fatal]

NARRATIVE: CASE EVENT DATE: 2018
